FAERS Safety Report 4300503-4 (Version None)
Quarter: 2004Q1

REPORT INFORMATION
  Report Type: 
  Country: None (occurrence: None)
  Receive Date: 20040218
  Receipt Date: 20040205
  Transmission Date: 20041129
  Serious: Yes (Hospitalization)
  Sender: FDA-Public Use
  Company Number: US046257

PATIENT
  Age: 63 Year
  Sex: Female

DRUGS (15)
  1. ENBREL [Suspect]
     Indication: RHEUMATOID ARTHRITIS
     Dosage: 25 MG, TWICE WEEKLY, SC
     Route: 058
     Dates: start: 20021121, end: 20030601
  2. LEFLUNOMIDE [Concomitant]
  3. GABAPENTIN [Concomitant]
  4. LOSARTAN POTASSIUM HYDROCHLORIDE [Concomitant]
  5. PRAVASTATIN SODIUM [Concomitant]
  6. LISINOPRIL [Concomitant]
  7. POTASSIUM CHLORIDE [Concomitant]
  8. PIOGLITAZONE HCL [Concomitant]
  9. LEVOTHYROXINE SODIUM [Concomitant]
  10. CYCLOBENZAPRINE HCL [Concomitant]
  11. ASPIRIN [Concomitant]
  12. INSULIN [Concomitant]
  13. PENTAZOCINE [Concomitant]
  14. HYDROMORPHONE HYDROCHLORIDE [Concomitant]
  15. MULTIVITAMIN [Concomitant]

REACTIONS (9)
  - BONE INFECTION [None]
  - CYSTITIS [None]
  - FOOT AMPUTATION [None]
  - KNEE ARTHROPLASTY [None]
  - LOCALISED INFECTION [None]
  - OSTEOMYELITIS [None]
  - SCAR [None]
  - SURGICAL PROCEDURE REPEATED [None]
  - URINARY RETENTION [None]
